FAERS Safety Report 24610698 (Version 1)
Quarter: 2024Q4

REPORT INFORMATION
  Report Type: Other
  Country: US (occurrence: US)
  Receive Date: 20241112
  Receipt Date: 20241112
  Transmission Date: 20250115
  Serious: Yes (Other)
  Sender: HLS THERAPEUTICS
  Company Number: US-HLS-202401215

PATIENT
  Age: 35 Year
  Sex: Female

DRUGS (2)
  1. CLOZAPINE [Suspect]
     Active Substance: CLOZAPINE
     Indication: Schizophrenia
     Dosage: 400 MG PER DAY
     Route: 065
  2. CLOZAPINE [Suspect]
     Active Substance: CLOZAPINE
     Indication: Schizophrenia
     Dosage: 500 MG PER DAY
     Route: 065

REACTIONS (7)
  - Constipation [Recovering/Resolving]
  - Drooling [Recovering/Resolving]
  - Asthenia [Recovering/Resolving]
  - Psychotic symptom [Recovering/Resolving]
  - Fatigue [Recovering/Resolving]
  - Sedation [Recovering/Resolving]
  - Weight increased [Recovering/Resolving]
